FAERS Safety Report 5398360-0 (Version None)
Quarter: 2007Q3

REPORT INFORMATION
  Report Type: 
  Country: None (occurrence: None)
  Receive Date: 20070726
  Receipt Date: 20070529
  Transmission Date: 20080115
  Serious: No
  Sender: FDA-Public Use
  Company Number: US-AMGEN-KDL226740

PATIENT
  Sex: Male
  Weight: 74.9 kg

DRUGS (4)
  1. PROCRIT [Suspect]
     Indication: ANAEMIA OF MALIGNANT DISEASE
     Dates: start: 20061101
  2. UNSPECIFIED MEDICATION [Concomitant]
  3. UNSPECIFIED ANTIDIABETIC AGENT [Concomitant]
  4. ZOCOR [Concomitant]

REACTIONS (3)
  - DECREASED ACTIVITY [None]
  - FATIGUE [None]
  - FEELING ABNORMAL [None]
